FAERS Safety Report 25424266 (Version 1)
Quarter: 2025Q2

REPORT INFORMATION
  Report Type: Spontaneous
  Country: US (occurrence: US)
  Receive Date: 20250611
  Receipt Date: 20250611
  Transmission Date: 20250717
  Serious: No
  Sender: SANOFI AVENTIS
  Company Number: US-SA-2025SA162762

PATIENT
  Sex: Female
  Weight: 57.73 kg

DRUGS (21)
  1. DUPIXENT [Suspect]
     Active Substance: DUPILUMAB
     Indication: Neurodermatitis
     Dosage: 300 MG, QOW
     Route: 058
  2. DUPIXENT [Suspect]
     Active Substance: DUPILUMAB
     Indication: Neurodermatitis
  3. ADDERALL [Concomitant]
     Active Substance: AMPHETAMINE ASPARTATE\AMPHETAMINE SULFATE\DEXTROAMPHETAMINE SACCHARATE\DEXTROAMPHETAMINE SULFATE
  4. DOXEPIN HYDROCHLORIDE [Concomitant]
     Active Substance: DOXEPIN HYDROCHLORIDE
  5. HYDROXYZINE HYDROCHLORIDE [Concomitant]
     Active Substance: HYDROXYZINE HYDROCHLORIDE
  6. ZYRTEC [Concomitant]
     Active Substance: CETIRIZINE HYDROCHLORIDE
  7. ADDERALL [Concomitant]
     Active Substance: AMPHETAMINE ASPARTATE\AMPHETAMINE SULFATE\DEXTROAMPHETAMINE SACCHARATE\DEXTROAMPHETAMINE SULFATE
  8. AJOVY [Concomitant]
     Active Substance: FREMANEZUMAB-VFRM
  9. VITAMIN D3 [Concomitant]
     Active Substance: CHOLECALCIFEROL
  10. VITAMIN C [Concomitant]
     Active Substance: ASCORBIC ACID
  11. CALCIUM [Concomitant]
     Active Substance: CALCIUM
  12. OXYBUTYNIN CHLORIDE [Concomitant]
     Active Substance: OXYBUTYNIN CHLORIDE
  13. ZANAFLEX [Concomitant]
     Active Substance: TIZANIDINE HYDROCHLORIDE
  14. MELOXICAM [Concomitant]
     Active Substance: MELOXICAM
  15. OMEPRAZOLE [Concomitant]
     Active Substance: OMEPRAZOLE
  16. ASPIRIN [Concomitant]
     Active Substance: ASPIRIN
  17. FISH OIL [Concomitant]
     Active Substance: FISH OIL
  18. NOVOLOG [Concomitant]
     Active Substance: INSULIN ASPART
  19. ACETAMINOPHEN\HYDROCODONE [Concomitant]
     Active Substance: ACETAMINOPHEN\HYDROCODONE
  20. HERBALS [Concomitant]
     Active Substance: HERBALS
  21. ZINC [Concomitant]
     Active Substance: ZINC

REACTIONS (3)
  - Rebound effect [Unknown]
  - Spinal operation [Unknown]
  - Product use in unapproved indication [Unknown]
